FAERS Safety Report 23642765 (Version 1)
Quarter: 2024Q1

REPORT INFORMATION
  Report Type: Spontaneous
  Country: US (occurrence: US)
  Receive Date: 20240318
  Receipt Date: 20240318
  Transmission Date: 20240410
  Serious: Yes (Hospitalization, Other)
  Sender: FDA-Public Use
  Company Number: US-ELI_LILLY_AND_COMPANY-US202403003692

PATIENT
  Age: 92 Year
  Sex: Female

DRUGS (3)
  1. HUMULIN R [Suspect]
     Active Substance: INSULIN HUMAN
     Indication: Diabetes mellitus
     Dosage: UNK UNK, UNKNOWN
     Route: 065
  2. HUMULIN R [Suspect]
     Active Substance: INSULIN HUMAN
     Dosage: UNK UNK, UNKNOWN
     Route: 065
  3. HUMULIN N [Suspect]
     Active Substance: INSULIN HUMAN
     Indication: Diabetes mellitus
     Dosage: UNK UNK, UNKNOWN
     Route: 065

REACTIONS (10)
  - Blood glucose increased [Recovering/Resolving]
  - Dehydration [Recovering/Resolving]
  - Feeding disorder [Recovering/Resolving]
  - Eye complication associated with device [Unknown]
  - Speech disorder [Recovered/Resolved]
  - Vision blurred [Recovering/Resolving]
  - Blood glucose increased [Recovering/Resolving]
  - Muscle spasms [Recovered/Resolved]
  - Cataract [Recovering/Resolving]
  - Wrong technique in product usage process [Unknown]

NARRATIVE: CASE EVENT DATE: 20240304
